FAERS Safety Report 10106825 (Version 2)
Quarter: 2014Q2

REPORT INFORMATION
  Report Type: Spontaneous
  Country: JP (occurrence: JP)
  Receive Date: 20140424
  Receipt Date: 20140501
  Transmission Date: 20141212
  Serious: Yes (Other)
  Sender: FDA-Public Use
  Company Number: JP-ALLERGAN-1408121US

PATIENT
  Age: 89 Year
  Sex: Female

DRUGS (5)
  1. BOTOX [Suspect]
     Indication: MUSCLE SPASMS
     Dosage: 250 UNITS, QD
     Route: 030
     Dates: start: 20120803, end: 20120803
  2. BOTOX [Suspect]
     Dosage: 250 UNITS, QD
     Route: 030
     Dates: start: 20121130, end: 20121130
  3. BOTOX [Suspect]
     Dosage: 250 UNITS, QD
     Route: 030
     Dates: start: 20130315, end: 20130315
  4. BOTOX [Suspect]
     Dosage: 250 UNITS, QD
     Route: 030
     Dates: start: 20130716, end: 20130716
  5. BOTOX [Suspect]
     Dosage: 250 UNITS, QD
     Route: 030
     Dates: start: 20131112, end: 20131112

REACTIONS (1)
  - Platelet count decreased [Recovered/Resolved]
